FAERS Safety Report 23037157 (Version 1)
Quarter: 2023Q4

REPORT INFORMATION
  Report Type: Spontaneous
  Country: GB (occurrence: GB)
  Receive Date: 20231006
  Receipt Date: 20231006
  Transmission Date: 20240110
  Serious: Yes (Other)
  Sender: FDA-Public Use
  Company Number: None

PATIENT
  Age: 85 Year
  Sex: Male
  Weight: 79 kg

DRUGS (3)
  1. IBUPROFEN [Suspect]
     Active Substance: IBUPROFEN
     Indication: Sciatica
     Dosage: 200 MILLIGRAM (3 OR 4 TIMES A DAY) (TABLET)
     Route: 065
  2. IBUPROFEN [Suspect]
     Active Substance: IBUPROFEN
     Indication: Sciatica
     Dosage: 400 MILLIGRAM (TWICE OR 3 TIMES A DAY)
     Route: 065
     Dates: start: 20230706, end: 20230716
  3. GOSERELIN [Concomitant]
     Active Substance: GOSERELIN
     Indication: Cancer hormonal therapy
     Dosage: UNK
     Route: 065
     Dates: start: 20220713

REACTIONS (1)
  - Diarrhoea [Recovered/Resolved]

NARRATIVE: CASE EVENT DATE: 20230706
